FAERS Safety Report 11078190 (Version 3)
Quarter: 2016Q2

REPORT INFORMATION
  Report Type: Spontaneous
  Country: US (occurrence: US)
  Receive Date: 20150430
  Receipt Date: 20160606
  Transmission Date: 20160815
  Serious: Yes (Other)
  Sender: FDA-Public Use
  Company Number: US-JNJFOC-20150414695

PATIENT
  Sex: Male

DRUGS (2)
  1. RISPERDAL [Suspect]
     Active Substance: RISPERIDONE
     Indication: PRODUCT USED FOR UNKNOWN INDICATION
     Route: 048
     Dates: start: 2007
  2. RISPERDAL [Suspect]
     Active Substance: RISPERIDONE
     Indication: PRODUCT USED FOR UNKNOWN INDICATION
     Route: 048
     Dates: end: 2010

REACTIONS (11)
  - Gynaecomastia [Unknown]
  - Depression [Unknown]
  - Bipolar disorder [Unknown]
  - Hyperprolactinaemia [Unknown]
  - Insomnia [Unknown]
  - Mental disorder [Unknown]
  - Electrocardiogram abnormal [Unknown]
  - Abnormal weight gain [Unknown]
  - Bradycardia [Unknown]
  - Mood swings [Unknown]
  - Suicidal ideation [Unknown]
